FAERS Safety Report 21934599 (Version 1)
Quarter: 2023Q1

REPORT INFORMATION
  Report Type: Spontaneous
  Country: FR (occurrence: FR)
  Receive Date: 20230201
  Receipt Date: 20230201
  Transmission Date: 20230417
  Serious: Yes (Hospitalization, Other)
  Sender: FDA-Public Use
  Company Number: FR-AFSSAPS-AN2023000081

PATIENT
  Age: 23 Year
  Sex: Male

DRUGS (2)
  1. ACETAMINOPHEN [Suspect]
     Active Substance: ACETAMINOPHEN
     Indication: Influenza like illness
     Dosage: UNK
     Route: 048
     Dates: start: 20221231, end: 20230105
  2. HOMEOPATHICS [Suspect]
     Active Substance: HOMEOPATHICS
     Indication: Influenza like illness
     Dosage: UNK
     Route: 048
     Dates: start: 20221231, end: 20230105

REACTIONS (1)
  - Anaphylactoid reaction [Recovering/Resolving]

NARRATIVE: CASE EVENT DATE: 20230105
